FAERS Safety Report 8493842-7 (Version None)
Quarter: 2012Q3

REPORT INFORMATION
  Report Type: 
  Country: None (occurrence: None)
  Receive Date: 20120706
  Receipt Date: 20120702
  Transmission Date: 20120928
  Serious: Yes (Hospitalization, Other)
  Sender: FDA-Public Use
  Company Number: PHHY2012US056722

PATIENT
  Age: 71 Year
  Sex: Female

DRUGS (9)
  1. MECLIZINE [Concomitant]
     Dosage: 12.4 MG, BID
  2. HIMALAYAN GOGI JUICE [Interacting]
     Dosage: 30 ML, BID
  3. ALPRAZOLAM [Concomitant]
     Indication: ANXIETY
     Dosage: 0.5 MG, QD
  4. DIPHENHYDRAMINE HCL [Concomitant]
     Indication: INSOMNIA
     Dosage: 50 MG, QHS
  5. WARFARIN SODIUM [Interacting]
     Dosage: 3 MG, QD
  6. EZETIMIBE [Concomitant]
     Dosage: 10 MG, QD
  7. FAMOTIDINE [Concomitant]
     Dosage: 20 MG, BID
  8. WARFARIN SODIUM [Suspect]
     Indication: THROMBOSIS PROPHYLAXIS
     Dosage: 1.5 MG, QD
  9. LISINOPRIL [Concomitant]
     Dosage: 20 MG, QD

REACTIONS (6)
  - CONTUSION [None]
  - ECCHYMOSIS [None]
  - HAEMATOCHEZIA [None]
  - INTERNATIONAL NORMALISED RATIO INCREASED [None]
  - DRUG INTERACTION [None]
  - EPISTAXIS [None]
